FAERS Safety Report 9311114 (Version 1)
Quarter: 2013Q2

REPORT INFORMATION
  Report Type: Spontaneous
  Country: US (occurrence: None)
  Receive Date: 20130523
  Receipt Date: 20130523
  Transmission Date: 20140414
  Serious: No
  Sender: FDA-Public Use
  Company Number: None

PATIENT
  Age: 47 Year
  Sex: Female

DRUGS (3)
  1. SOLU-MEDROL [Suspect]
     Dates: start: 1992, end: 2008
  2. COPAXONE [Suspect]
  3. AVONEX [Suspect]

REACTIONS (6)
  - Vision blurred [None]
  - Feeling abnormal [None]
  - Pharyngeal oedema [None]
  - Feeling cold [None]
  - Influenza like illness [None]
  - Ill-defined disorder [None]
